FAERS Safety Report 10235468 (Version 2)
Quarter: 2015Q3

REPORT INFORMATION
  Report Type: Spontaneous
  Country: US (occurrence: US)
  Receive Date: 20140613
  Receipt Date: 20150904
  Transmission Date: 20151125
  Serious: Yes (Life-Threatening, Hospitalization)
  Sender: FDA-Public Use
  Company Number: US-BAYER-2014-088552

PATIENT

DRUGS (2)
  1. ALKA-SELTZER PLUS COLD + COUGH FORMULA CITRUS [Suspect]
     Active Substance: ASPIRIN\CHLORPHENIRAMINE MALEATE\DEXTROMETHORPHAN HYDROBROMIDE\PHENYLEPHRINE BITARTRATE
     Indication: NASOPHARYNGITIS
     Dosage: UNK
     Route: 048
     Dates: start: 20130116
  2. ALKA-SELTZER PLUS COLD + COUGH FORMULA CITRUS [Suspect]
     Active Substance: ASPIRIN\CHLORPHENIRAMINE MALEATE\DEXTROMETHORPHAN HYDROBROMIDE\PHENYLEPHRINE BITARTRATE
     Indication: NASOPHARYNGITIS
     Dosage: UNK
     Dates: start: 20130117

REACTIONS (12)
  - Toxic epidermal necrolysis [Unknown]
  - Oral mucosal blistering [Unknown]
  - Intentional product misuse [None]
  - Emotional distress [None]
  - Skin exfoliation [Unknown]
  - Loss of consciousness [Unknown]
  - Pain [Unknown]
  - Deformity [Unknown]
  - Anxiety [None]
  - Injury [Unknown]
  - Coma [Unknown]
  - Malaise [Unknown]

NARRATIVE: CASE EVENT DATE: 20130116
